FAERS Safety Report 6381641-1 (Version None)
Quarter: 2009Q3

REPORT INFORMATION
  Report Type: 
  Country: None (occurrence: None)
  Receive Date: 20090930
  Receipt Date: 20090923
  Transmission Date: 20100115
  Serious: Yes (Hospitalization)
  Sender: FDA-Public Use
  Company Number: US-BIOGENIDEC-2009BI030802

PATIENT
  Sex: Female

DRUGS (6)
  1. TYSABRI [Suspect]
     Indication: CROHN'S DISEASE
     Route: 042
     Dates: start: 20081003
  2. FOSAMAX [Concomitant]
     Route: 048
  3. PROCRIT [Concomitant]
     Route: 058
  4. TPN [Concomitant]
  5. VITAMIN K [Concomitant]
  6. ZOLOFT [Concomitant]
     Route: 048

REACTIONS (2)
  - HAEMORRHAGE [None]
  - WEIGHT DECREASED [None]
